FAERS Safety Report 13193429 (Version 1)
Quarter: 2017Q1

REPORT INFORMATION
  Report Type: Spontaneous
  Country: DE (occurrence: DE)
  Receive Date: 20170207
  Receipt Date: 20170207
  Transmission Date: 20170428
  Serious: Yes (Other)
  Sender: FDA-Public Use
  Company Number: DE-TEVA-734353GER

PATIENT
  Age: 41 Year
  Sex: Female
  Weight: 60 kg

DRUGS (1)
  1. MOXIFLOXACIN-RATIOPHARM 400 MG FILMTABLETTEN [Suspect]
     Active Substance: MOXIFLOXACIN
     Indication: PNEUMONIA
     Dosage: 400 MILLIGRAM DAILY;
     Route: 048
     Dates: start: 20160205

REACTIONS (25)
  - Nausea [Unknown]
  - Cough [Unknown]
  - Arthralgia [Unknown]
  - Anosmia [Unknown]
  - Diarrhoea [Unknown]
  - Respiratory distress [Unknown]
  - Dizziness [Unknown]
  - Visual impairment [Unknown]
  - Asthenia [Unknown]
  - Vomiting [Unknown]
  - Tremor [Unknown]
  - Somnolence [Unknown]
  - Dehydration [Unknown]
  - Hypersensitivity [Unknown]
  - Headache [Unknown]
  - Malaise [Unknown]
  - Palpitations [Unknown]
  - Yellow skin [Unknown]
  - Rash [Unknown]
  - Paraesthesia [Unknown]
  - Sleep disorder [Unknown]
  - Skin discolouration [Unknown]
  - Productive cough [Unknown]
  - Decreased appetite [Unknown]
  - Ageusia [Unknown]

NARRATIVE: CASE EVENT DATE: 20160208
